FAERS Safety Report 11312012 (Version 1)
Quarter: 2015Q3

REPORT INFORMATION
  Report Type: Spontaneous
  Country: US (occurrence: None)
  Receive Date: 20150724
  Receipt Date: 20150724
  Transmission Date: 20151125
  Serious: No
  Sender: FDA-Public Use
  Company Number: None

PATIENT
  Age: 49 Year
  Sex: Female

DRUGS (12)
  1. SALMETEROL [Concomitant]
     Active Substance: SALMETEROL
  2. FUROSEMIDE. [Concomitant]
     Active Substance: FUROSEMIDE
  3. RITONAVIR. [Concomitant]
     Active Substance: RITONAVIR
  4. EMTRICITABINE + TENOFOVIR [Concomitant]
     Active Substance: EMTRICITABINE\TENOFOVIR
  5. ALBUTEROL. [Concomitant]
     Active Substance: ALBUTEROL
  6. INSULIN [Concomitant]
     Active Substance: INSULIN NOS
  7. LOSARTAN. [Concomitant]
     Active Substance: LOSARTAN
  8. RIVAROXABAN [Suspect]
     Active Substance: RIVAROXABAN
     Indication: PULMONARY EMBOLISM
     Route: 048
     Dates: start: 20150303, end: 20150402
  9. DARUNAVIR [Concomitant]
     Active Substance: DARUNAVIR
  10. TIOTROPIUM [Concomitant]
     Active Substance: TIOTROPIUM
  11. FLUTICASONE [Concomitant]
     Active Substance: FLUTICASONE\FLUTICASONE PROPIONATE
  12. GABAPENTIN. [Concomitant]
     Active Substance: GABAPENTIN

REACTIONS (5)
  - Arthralgia [None]
  - Contusion [None]
  - Oedema peripheral [None]
  - Abscess [None]
  - Osteomyelitis [None]

NARRATIVE: CASE EVENT DATE: 20150331
